FAERS Safety Report 7476766-3 (Version None)
Quarter: 2011Q2

REPORT INFORMATION
  Report Type: 
  Country: None (occurrence: None)
  Receive Date: 20110512
  Receipt Date: 20110502
  Transmission Date: 20111010
  Serious: Yes (Hospitalization)
  Sender: FDA-Public Use
  Company Number: AU-TEVA-281134ISR

PATIENT
  Sex: Female

DRUGS (10)
  1. LENALIDOMIDE [Suspect]
     Indication: MULTIPLE MYELOMA
     Route: 048
     Dates: start: 20100521
  2. DEXAMETHASONE [Suspect]
     Indication: MULTIPLE MYELOMA
     Dates: start: 20100521
  3. MICROLAX [Concomitant]
     Route: 058
  4. SENNA ALEXANDRINA [Concomitant]
     Indication: CONSTIPATION
  5. LIDOCAINE [Concomitant]
     Indication: MOUTH ULCERATION
     Route: 061
  6. DEXAMETHASONE [Suspect]
     Dates: start: 20101202
  7. LENALIDOMIDE [Suspect]
     Route: 048
     Dates: start: 20101203
  8. METOCLOPRAMIDE [Concomitant]
     Indication: VOMITING
  9. DOCUSATE SODIUM [Concomitant]
     Indication: CONSTIPATION
  10. METOCLOPRAMIDE [Concomitant]
     Indication: NAUSEA

REACTIONS (1)
  - LOSS OF CONSCIOUSNESS [None]
